FAERS Safety Report 7462567-9 (Version None)
Quarter: 2011Q1

REPORT INFORMATION
  Report Type: 
  Country: None (occurrence: None)
  Receive Date: 20110302
  Receipt Date: 20101109
  Transmission Date: 20110831
  Serious: Yes (Other)
  Sender: FDA-Public Use
  Company Number: 163-21880-10111223

PATIENT
  Age: 50 Year
  Sex: Male

DRUGS (1)
  1. REVLIMID [Suspect]
     Indication: MULTIPLE MYELOMA
     Dosage: 25 MG, QD FOR 21 DAYS, PO
     Route: 048
     Dates: start: 20101007

REACTIONS (5)
  - JOINT SWELLING [None]
  - FATIGUE [None]
  - WHITE BLOOD CELL COUNT DECREASED [None]
  - GRANULOCYTE COUNT DECREASED [None]
  - DYSPNOEA [None]
